FAERS Safety Report 18764601 (Version 1)
Quarter: 2021Q1

REPORT INFORMATION
  Report Type: Spontaneous
  Country: US (occurrence: US)
  Receive Date: 20210120
  Receipt Date: 20210120
  Transmission Date: 20210419
  Serious: No
  Sender: FDA-Public Use
  Company Number: US-PFIZER INC-2016323326

PATIENT
  Age: 89 Year
  Sex: Female

DRUGS (51)
  1. LYRICA [Suspect]
     Active Substance: PREGABALIN
     Indication: PAIN
     Dosage: 50 MG, 2X/DAY
     Route: 048
  2. NYSTATIN AND TRIAMCINOLONE [Concomitant]
     Active Substance: NYSTATIN\TRIAMCINOLONE ACETONIDE
     Indication: VULVITIS
     Dosage: 0.1 %, 2X/DAY (2 TIMES EVERY DAY TO THE AFFECTED AREA(S) IN THE MORNING AND EVENING)
     Route: 061
  3. TOBRADEX [Concomitant]
     Active Substance: DEXAMETHASONE\TOBRAMYCIN
     Indication: EYE INFECTION
     Dosage: UNK, 3X/DAY (APPLY OPHTHALMIC ROUTE 3 TIMES EVERY DAY A SMALL AMOUNT INTO THE CONJUNCTIVAL SAC)
     Route: 047
  4. POTASSIUM CHLORIDE. [Concomitant]
     Active Substance: POTASSIUM CHLORIDE
     Indication: CARDIAC DISORDER
     Dosage: 10 MEQ, 1X/DAY  (WITH FOOD AT 5 PM, APPROX. TIMES: 9:00AM)
     Route: 048
  5. DEXILANT [Concomitant]
     Active Substance: DEXLANSOPRAZOLE
     Indication: GASTROOESOPHAGEAL REFLUX DISEASE
     Dosage: 60 MG, DAILY
  6. RANEXA [Concomitant]
     Active Substance: RANOLAZINE
     Indication: ANGINA PECTORIS
     Dosage: 1000 MG, 2X/DAY (W/FOOD APPROX. TIMES: 8:00AM / 9:00 PM)
     Route: 048
  7. CITRUCEL [Concomitant]
     Active Substance: METHYLCELLULOSE (4000 MPA.S)
     Indication: SUPPLEMENTATION THERAPY
     Dosage: UNK, 1X/DAY (COMMENTS: HEAPING TBSP; APPROX. TIMES: 8:00PM)
  8. CLOTRIM [Concomitant]
     Indication: CYSTITIS
     Dosage: 0.05 %, AS NEEDED
  9. VIT B 12 [Concomitant]
     Active Substance: CYANOCOBALAMIN
     Dosage: 2500 MG, 1X/DAY (APPROX. TIMES: 8:00AM)
  10. CLOBETASOL 0.05% [Concomitant]
     Active Substance: CLOBETASOL
     Indication: VULVITIS
     Dosage: UNK, 2X/DAY (ROUTE 2 TIMES EVERY DAY A THIN LAYER TO THE AFFECTED AREA)
     Route: 061
  11. NYSTATIN AND TRIAMCINOLONE [Concomitant]
     Active Substance: NYSTATIN\TRIAMCINOLONE ACETONIDE
     Dosage: UNK, AS NEEDED
  12. ASPIRIN. [Concomitant]
     Active Substance: ASPIRIN
     Indication: BLOOD DISORDER
     Dosage: 81 MG, 1X/DAY (12:00PM)
  13. ZOSTAVAX [Concomitant]
     Active Substance: VARICELLA-ZOSTER VIRUS STRAIN OKA/MERCK LIVE ANTIGEN
     Dosage: UNK (ONE INJECTION)
     Route: 058
     Dates: start: 20160210
  14. REPLENS [Concomitant]
     Active Substance: CARBOMER 934\GLYCERIN\METHYLPARABEN\PROPYLPARABEN\SODIUM HYDROXIDE
     Indication: VULVOVAGINAL DRYNESS
     Dosage: UNK, 1X/DAY (APPROX. TIMES: BEDTIME)
  15. TOBRADEX [Concomitant]
     Active Substance: DEXAMETHASONE\TOBRAMYCIN
     Dosage: UNK, AS NEEDED (COMMENTS: EACH EYELID)
     Route: 047
  16. LIDOCAINE. [Concomitant]
     Active Substance: LIDOCAINE
     Dosage: UNK
  17. FLUTICASONE. [Concomitant]
     Active Substance: FLUTICASONE
     Indication: HYPERSENSITIVITY
     Dosage: UNK, AS NEEDED
  18. LYRICA [Suspect]
     Active Substance: PREGABALIN
     Indication: NEUROPATHY PERIPHERAL
     Dosage: 50 MG, 3X/DAY (1 TAB TID, APPROX. TIMES: 7:00AM / NOON / 8:00PM)
     Route: 048
  19. VIT B 12 [Concomitant]
     Active Substance: CYANOCOBALAMIN
     Dosage: 1000 UG
     Route: 060
  20. ESTRACE [Concomitant]
     Active Substance: ESTRADIOL
     Dosage: 1 G, WEEKLY
     Route: 067
  21. FLOVENT [Concomitant]
     Active Substance: FLUTICASONE PROPIONATE
     Dosage: UNK, 2X/DAY (50MCG/ACTUATION/INHALE 2 PUFF BY INHALATION ROUTE 2 TIMES EVERY DAY)
     Route: 055
  22. VOLTAREN [Concomitant]
     Active Substance: DICLOFENAC SODIUM
     Indication: ARTHRITIS
     Dosage: UNK, 2X/DAY  (AM AND PM)
     Route: 061
  23. VITAMIN C WITH ROSE HIPS [Concomitant]
     Dosage: 500 MG, 1X/DAY (EVERY DAY IN AFTERNOON, APPROX. TIMES: 12:00PM)
     Route: 048
     Dates: start: 20160406
  24. EVISTA [Concomitant]
     Active Substance: RALOXIFENE HYDROCHLORIDE
     Dosage: 60 MG, DAILY
     Route: 048
  25. RALOXIFENE. [Concomitant]
     Active Substance: RALOXIFENE
     Indication: BONE DISORDER
     Dosage: 60 MG, 1X/DAY (APPROX. TIMES: 6:00PM)
  26. ESTRACE [Concomitant]
     Active Substance: ESTRADIOL
     Indication: VULVITIS
     Dosage: UNK, AS NEEDED (DOSAGE: SMALL AMOUNT; APPROX. TIMES)
  27. NITROQUICK [Concomitant]
     Active Substance: NITROGLYCERIN
     Indication: CHEST PAIN
     Dosage: 0.4 MG, AS NEEDED (LIMIT 3? EACH 5 MIN. UNDER TONGUE)
     Route: 060
  28. ALLEGRA [Concomitant]
     Active Substance: FEXOFENADINE HYDROCHLORIDE
     Indication: HYPERSENSITIVITY
     Dosage: 180 MG, DAILY (TAKE 1 TABLET BY ORAL ROUTE EVERY DAY)
     Route: 048
  29. NITROGLYCERIN. [Concomitant]
     Active Substance: NITROGLYCERIN
     Indication: PAIN
     Dosage: 1 DF, UNK (1 TABLET BY SUBLINGUAL ROUTE AT THE 1ST SIGN OF ATTACK, MAY REPEAT EVERY 5 MIN)
     Route: 060
  30. LEVOTHYROXINE. [Concomitant]
     Active Substance: LEVOTHYROXINE
     Dosage: 75 MG, 1X/DAY (BEFORE BREAKFAST APPROAX TIMES: 6:00AM)
  31. DEXILANT [Concomitant]
     Active Substance: DEXLANSOPRAZOLE
     Dosage: 60 MG, 1X/DAY (APPROX TIMES: 7:00AM)
  32. AMIBAC [Concomitant]
     Dosage: UNK
  33. MUCINEX [Concomitant]
     Active Substance: GUAIFENESIN
     Indication: UPPER-AIRWAY COUGH SYNDROME
     Dosage: 1200 MG, 2X/DAY (APPROX. TIMES: AM/PM)
  34. FLUTICASONE. [Concomitant]
     Active Substance: FLUTICASONE
     Indication: SINUSITIS
  35. LEVOFLOXACIN. [Concomitant]
     Active Substance: LEVOFLOXACIN
     Indication: CYSTITIS
     Dosage: 500 MG, AS NEEDED
  36. CALCIUM CARBONATE AND VITAMIN D [Concomitant]
     Active Substance: CALCIUM CARBONATE\VITAMIN D
     Indication: OSTEOPOROSIS
     Dosage: 600 MG, 2X/DAY (600 MG CALCIUM CARBONATE (1500) ? D3 (200 UNIT) TABLET, APPROX. TIMES: 12:00AM/8:00P
     Route: 048
  37. ASPIRIN. [Concomitant]
     Active Substance: ASPIRIN
     Indication: CARDIAC DISORDER
     Dosage: 81 MG, DAILY (APPROX. TIMES: 12:00PM)
     Route: 048
  38. CARVEDILOL. [Concomitant]
     Active Substance: CARVEDILOL
     Indication: HYPERTENSION
     Dosage: 12.5 MG, 2X/DAY (2 TIMES EVERY DAY WITH FOOD APPROX. TIMES: 8:00AM / 8:00PM)
     Route: 048
  39. MIRALAX [Concomitant]
     Active Substance: POLYETHYLENE GLYCOL 3350
     Indication: LAXATIVE SUPPORTIVE CARE
     Dosage: UNK, 1X/DAY (DOSAGE: 2 TBSP; COMMENTS: HEAPING TBSP; APPROX. TIMES: 8:00AM)
  40. BETA [Concomitant]
     Indication: CYSTITIS
     Dosage: 0.05 %, AS NEEDED (APPROX. TIMES: ONLY WHEN NEEDED)
  41. TERCONAZOLE. [Concomitant]
     Active Substance: TERCONAZOLE
     Dosage: UNK, AS NEEDED
  42. ATORVASTATIN [Concomitant]
     Active Substance: ATORVASTATIN
     Indication: BLOOD CHOLESTEROL
     Dosage: 20 MG, DAILY
     Route: 048
  43. FUROSEMIDE. [Concomitant]
     Active Substance: FUROSEMIDE
     Indication: CARDIAC FAILURE CONGESTIVE
     Dosage: 40 MG, 1X/DAY  (EVERY DAY AT 5PM/BEFORE BREAKFAST APPROX. TIMES: 9:00AM)
     Route: 048
  44. ALLEGRA [Concomitant]
     Active Substance: FEXOFENADINE HYDROCHLORIDE
     Dosage: 180 MG, AS NEEDED (APPROX. TIMES: NOON)
  45. CLOBETASOL 0.05% [Concomitant]
     Active Substance: CLOBETASOL
     Dosage: 0.05 %, AS NEEDED
  46. TERCONAZOLE. [Concomitant]
     Active Substance: TERCONAZOLE
     Indication: FUNGAL INFECTION
     Dosage: UNK, 1X/DAY (INSERT 1 APPILICATORFUL BY VAGINAL ROUTE EVERY DAY FOR 7 DAYS AT BEDTIME)
     Route: 067
  47. LEVOTHYROXINE. [Concomitant]
     Active Substance: LEVOTHYROXINE
     Indication: THYROID DISORDER
     Dosage: 75 UG, DAILY
     Route: 048
  48. TRIMETHOPRIM. [Concomitant]
     Active Substance: TRIMETHOPRIM
     Indication: CYSTITIS
     Dosage: 100 MG, 1X/DAY (EVERY DAY, APPROX. TIMES: 8:00PM)
     Route: 048
  49. ATORVASTATIN [Concomitant]
     Active Substance: ATORVASTATIN
     Dosage: 20 MG, 1X/DAY (APPROAX TIMES: 8:00AM)
  50. PREVIDENT [Concomitant]
     Active Substance: SODIUM FLUORIDE
     Dosage: 1.3 %, 1X/DAY (TIMES DAILY:1,AFTER LUNCH)
  51. TYLENOL [Concomitant]
     Active Substance: ACETAMINOPHEN
     Indication: PAIN
     Dosage: 500 MG, AS NEEDED

REACTIONS (1)
  - Hypoacusis [Unknown]
